FAERS Safety Report 16172369 (Version 1)
Quarter: 2019Q2

REPORT INFORMATION
  Report Type: Spontaneous
  Country: CH (occurrence: CH)
  Receive Date: 20190409
  Receipt Date: 20190409
  Transmission Date: 20190711
  Serious: Yes (Other)
  Sender: FDA-Public Use
  Company Number: CH-ROCHE-2298915

PATIENT
  Sex: Female

DRUGS (2)
  1. LUCENTIS [Suspect]
     Active Substance: RANIBIZUMAB
     Indication: RETINAL DISORDER
  2. LUCENTIS [Suspect]
     Active Substance: RANIBIZUMAB
     Indication: THROMBOSIS
     Route: 065

REACTIONS (4)
  - Feeling hot [Recovered/Resolved]
  - Erythema [Recovered/Resolved]
  - Skin reaction [Recovered/Resolved]
  - Sleep disorder [Recovered/Resolved]

NARRATIVE: CASE EVENT DATE: 20180108
